FAERS Safety Report 9423543 (Version 3)
Quarter: 2013Q3

REPORT INFORMATION
  Report Type: Spontaneous
  Country: US (occurrence: US)
  Receive Date: 20130724
  Receipt Date: 20130910
  Transmission Date: 20140515
  Serious: Yes (Other)
  Sender: FDA-Public Use
  Company Number: US-PFIZER INC-2013215128

PATIENT
  Age: 61 Year
  Sex: Female
  Weight: 89.8 kg

DRUGS (1)
  1. LYRICA [Suspect]
     Indication: FIBROMYALGIA
     Dosage: 300 MG, 2X/DAY
     Route: 048

REACTIONS (3)
  - Fibromyalgia [Unknown]
  - Neuropathy peripheral [Unknown]
  - Gait disturbance [Unknown]
